FAERS Safety Report 7074567-1 (Version None)
Quarter: 2010Q4

REPORT INFORMATION
  Report Type: 
  Country: None (occurrence: None)
  Receive Date: 20101029
  Receipt Date: 20101018
  Transmission Date: 20110411
  Serious: Yes (Hospitalization)
  Sender: FDA-Public Use
  Company Number: DE-WATSON-2010-13086

PATIENT
  Age: 87 Year
  Sex: Female
  Weight: 84 kg

DRUGS (12)
  1. RAMIPRIL [Suspect]
     Indication: HYPERTENSION
     Dosage: 5 MG, UNKNOWN
     Route: 048
     Dates: start: 20051201
  2. AMLODIPINE BESYLATE [Suspect]
     Indication: HYPERTENSION
     Dosage: 2 1/2 MG, UNKNOWN
     Route: 048
     Dates: start: 20080801
  3. METOPROLOL [Suspect]
     Indication: HYPERTENSION
     Dosage: 95 MG, UNKNOWN
     Route: 048
     Dates: start: 20051201
  4. HYDROCHLOROTHIAZDE TAB [Suspect]
     Indication: HYPERTENSION
     Dosage: 25 MG, UNKNOWN
     Route: 048
     Dates: start: 20051201
  5. ISCOVER [Concomitant]
     Indication: AORTIC STENOSIS
     Dosage: 75 MG, UNK
     Route: 048
     Dates: start: 20051201
  6. NEXIUM [Concomitant]
     Indication: PROPHYLAXIS AGAINST GASTROINTESTINAL ULCER
     Dosage: 20 MG, UNK
     Route: 048
     Dates: start: 20051201
  7. CIPRALEX                           /01588501/ [Concomitant]
     Indication: DEPRESSION
     Dosage: 10 MG, UNK
     Route: 048
  8. SIMVASTATIN [Concomitant]
     Indication: HYPERLIPIDAEMIA
     Dosage: 40 MG, UNK
     Route: 048
     Dates: start: 20051201
  9. ALLOPURINOL [Concomitant]
     Indication: HYPERURICAEMIA
     Dosage: 100 MG, UNK
     Route: 048
  10. L-THYROXINE                        /00068001/ [Concomitant]
     Indication: HYPOTHYROIDISM
     Dosage: 75 MCG, UNK
     Route: 048
  11. SPASMEX                            /00376202/ [Concomitant]
     Indication: URGE INCONTINENCE
     Dosage: 2 1/2 MG, UNK
     Route: 048
  12. VESICARE [Concomitant]
     Indication: URGE INCONTINENCE
     Dosage: 10 MG, UNK
     Route: 048

REACTIONS (1)
  - BRADYCARDIA [None]
